FAERS Safety Report 9148508 (Version 1)
Quarter: 2013Q1

REPORT INFORMATION
  Report Type: Spontaneous
  Country: US (occurrence: None)
  Receive Date: 20130228
  Receipt Date: 20130228
  Transmission Date: 20140127
  Serious: Yes (Life-Threatening, Other)
  Sender: FDA-Public Use
  Company Number: None

PATIENT
  Age: 51 Year
  Sex: Female
  Weight: 80.74 kg

DRUGS (2)
  1. REDICAT BARIUM SULFATE [Suspect]
     Indication: RENAL SCAN
     Dosage: 2 BOTTLES-BARIUM SULFATE
     Route: 048
     Dates: start: 20130212, end: 20130212
  2. OMNIPAQUE [Suspect]
     Dosage: IV- OMNIPAQUE
     Route: 042

REACTIONS (2)
  - Urticaria [None]
  - Hypersensitivity [None]
